FAERS Safety Report 23152573 (Version 1)
Quarter: 2023Q4

REPORT INFORMATION
  Report Type: Spontaneous
  Country: IT (occurrence: IT)
  Receive Date: 20231107
  Receipt Date: 20231107
  Transmission Date: 20240110
  Serious: Yes (Other)
  Sender: FDA-Public Use
  Company Number: IT-AMGEN-ITASP2023196066

PATIENT
  Age: 7 Year
  Sex: Male

DRUGS (5)
  1. FILGRASTIM [Suspect]
     Active Substance: FILGRASTIM
     Indication: Infantile genetic agranulocytosis
     Dosage: 2Y/KG/ DIE
     Route: 065
  2. FILGRASTIM [Suspect]
     Active Substance: FILGRASTIM
     Dosage: 9 Y/KG/DIE
     Route: 065
  3. THALIDOMIDE [Concomitant]
     Active Substance: THALIDOMIDE
     Dosage: UNK
  4. EMPAGLIFLOZIN [Concomitant]
     Active Substance: EMPAGLIFLOZIN
     Dosage: 0.1 MILLIGRAM/KILOGRAM, PER DAY FOR THE FIRST 2DAYS
  5. EMPAGLIFLOZIN [Concomitant]
     Active Substance: EMPAGLIFLOZIN
     Dosage: 0.1 MILLIGRAM/KILOGRAM, TWO DOSES FROM DAY+ 3 OF TREATMENT AS PLANNED

REACTIONS (7)
  - Aphthous ulcer [Recovered/Resolved]
  - Splenomegaly [Unknown]
  - Inflammatory bowel disease [Unknown]
  - Hypersplenism [Unknown]
  - Hypoglycaemia [Unknown]
  - Infection [Unknown]
  - Glycosuria [Unknown]
